FAERS Safety Report 21858918 (Version 2)
Quarter: 2023Q1

REPORT INFORMATION
  Report Type: Report from Study
  Country: FR (occurrence: FR)
  Receive Date: 20230113
  Receipt Date: 20230119
  Transmission Date: 20230418
  Serious: Yes (Other)
  Sender: FDA-Public Use
  Company Number: FR-ASTPRD-AER-2023-000295

PATIENT

DRUGS (3)
  1. GILTERITINIB [Suspect]
     Active Substance: GILTERITINIB
     Indication: Acute myeloid leukaemia
     Route: 065
     Dates: start: 202101, end: 2021
  2. DAUNORUBICIN [Suspect]
     Active Substance: DAUNORUBICIN
     Indication: Acute myeloid leukaemia
     Dosage: 60 MG/M2, ONCE DAILY (DAY 1 TO DAY 7)
     Route: 065
     Dates: start: 202101, end: 202101
  3. CYTARABINE [Suspect]
     Active Substance: CYTARABINE
     Indication: Acute myeloid leukaemia
     Dosage: 200 MG/M2, ONCE DAILY (DAY 1 TO DAY 7)
     Route: 065
     Dates: start: 202101, end: 202101

REACTIONS (1)
  - Viral myocarditis [Recovered/Resolved]
